FAERS Safety Report 18598434 (Version 1)
Quarter: 2020Q4

REPORT INFORMATION
  Report Type: Report from Study
  Country: US (occurrence: US)
  Receive Date: 20201210
  Receipt Date: 20201210
  Transmission Date: 20210114
  Serious: Yes (Death)
  Sender: FDA-Public Use
  Company Number: US-ROCHE-2723251

PATIENT
  Age: 61 Year
  Sex: Male

DRUGS (10)
  1. LORAZEPAM. [Concomitant]
     Active Substance: LORAZEPAM
     Dates: start: 20201116, end: 20201117
  2. EPINEPHRINE. [Concomitant]
     Active Substance: EPINEPHRINE
  3. ONDANSETRON [Concomitant]
     Active Substance: ONDANSETRON
     Dates: start: 20201009, end: 20201117
  4. DKN-01. [Suspect]
     Active Substance: DKN-01
     Indication: OESOPHAGEAL ADENOCARCINOMA
     Dosage: THE MOST RECENT DOSE WAS ADMINISTERED ON 05/NOV/2020?DAYS 1-15 OF EACH 21-DAY CYCLE
     Route: 042
     Dates: start: 20201015, end: 20201117
  5. COMPAZINE [Concomitant]
     Active Substance: PROCHLORPERAZINE MALEATE
     Dates: start: 20201105, end: 20201117
  6. OLANZAPINE. [Concomitant]
     Active Substance: OLANZAPINE
     Dates: start: 20201116, end: 20201117
  7. SUCRALFATE. [Concomitant]
     Active Substance: SUCRALFATE
     Dates: start: 20201029, end: 20201117
  8. OXALIPLATIN. [Suspect]
     Active Substance: OXALIPLATIN
     Indication: OESOPHAGEAL ADENOCARCINOMA
     Dosage: THE MOST RECENT DOSE WAS ADMINISTERED ON 05/NOV/2020?DAYS 1-15 OF EACH 21-DAY CYCLE
     Route: 042
     Dates: start: 20201015, end: 20201117
  9. CAPECITABINE. [Suspect]
     Active Substance: CAPECITABINE
     Indication: OESOPHAGEAL ADENOCARCINOMA
     Dosage: THE MOST RECENT DOSE WAS ADMINISTERD ON 17/NOV/2020?DAYS 1-15 OF EACH 21-DAY CYCLE
     Route: 048
     Dates: start: 20201015, end: 20201117
  10. ESOMEPRAZOLE. [Concomitant]
     Active Substance: ESOMEPRAZOLE MAGNESIUM
     Dates: start: 20201105, end: 20201117

REACTIONS (1)
  - Embolism [Fatal]
